FAERS Safety Report 7954742-1 (Version None)
Quarter: 2011Q4

REPORT INFORMATION
  Report Type: 
  Country: None (occurrence: None)
  Receive Date: 20111202
  Receipt Date: 20111118
  Transmission Date: 20120403
  Serious: Yes (Hospitalization)
  Sender: FDA-Public Use
  Company Number: FR-EISAI INC-E3810-05108-SPO-FR

PATIENT
  Age: 79 Year
  Sex: Male

DRUGS (6)
  1. RABEPRAZOLE SODIUM [Suspect]
     Route: 048
     Dates: start: 20110722, end: 20110929
  2. VINCRISTINE SULFATE [Suspect]
     Dates: start: 20110909
  3. RITUXIMAB [Suspect]
     Dates: start: 20110908
  4. INNOHEP [Concomitant]
     Route: 058
     Dates: start: 20110701
  5. CYCLOPHOSPHAMIDE [Suspect]
     Dates: start: 20110909
  6. EPIRUBICIN [Suspect]
     Route: 042
     Dates: start: 20110909

REACTIONS (2)
  - CONDITION AGGRAVATED [None]
  - CHOLESTASIS [None]
